FAERS Safety Report 8200189-2 (Version None)
Quarter: 2012Q1

REPORT INFORMATION
  Report Type: 
  Country: None (occurrence: None)
  Receive Date: 20120309
  Receipt Date: 20120309
  Transmission Date: 20120608
  Serious: Yes (Disabling)
  Sender: FDA-Public Use
  Company Number: None

PATIENT
  Sex: Female
  Weight: 68.0396 kg

DRUGS (1)
  1. PRAVACHOL [Suspect]
     Indication: BLOOD CHOLESTEROL INCREASED
     Dosage: 40 MG QDAY PO
     Route: 048
     Dates: start: 20070921, end: 20080202

REACTIONS (3)
  - MYALGIA [None]
  - MUSCLE SPASMS [None]
  - MUSCLE ATROPHY [None]
